FAERS Safety Report 6713793-5 (Version None)
Quarter: 2010Q2

REPORT INFORMATION
  Report Type: 
  Country: None (occurrence: None)
  Receive Date: 20100506
  Receipt Date: 20100429
  Transmission Date: 20101027
  Serious: Yes (Other)
  Sender: FDA-Public Use
  Company Number: GXKR2010DE04632

PATIENT
  Age: 68 Year
  Sex: Female

DRUGS (1)
  1. ACETYLSALICYLIC ACID SRT [Suspect]
     Indication: CARDIOVASCULAR EVENT PROPHYLAXIS

REACTIONS (4)
  - CHEST PAIN [None]
  - HAEMATEMESIS [None]
  - HAEMATOMA [None]
  - OESOPHAGEAL DISORDER [None]
